FAERS Safety Report 9132460 (Version 2)
Quarter: 2013Q1

REPORT INFORMATION
  Report Type: Spontaneous
  Country: US (occurrence: US)
  Receive Date: 20130301
  Receipt Date: 20130325
  Transmission Date: 20140127
  Serious: Yes (Hospitalization)
  Sender: FDA-Public Use
  Company Number: US-GLAXOSMITHKLINE-A1014196A

PATIENT
  Age: 37 Year
  Sex: Female

DRUGS (1)
  1. FLOLAN [Suspect]
     Indication: PRODUCT USED FOR UNKNOWN INDICATION
     Dosage: 10.5NGKM CONTINUOUS
     Route: 042
     Dates: start: 20130219

REACTIONS (2)
  - Fall [Recovered/Resolved]
  - Hospitalisation [Unknown]
